FAERS Safety Report 21584945 (Version 1)
Quarter: 2022Q4

REPORT INFORMATION
  Report Type: Spontaneous
  Country: SE (occurrence: SE)
  Receive Date: 20221111
  Receipt Date: 20221111
  Transmission Date: 20230113
  Serious: Yes (Hospitalization)
  Sender: FDA-Public Use
  Company Number: SE-JNJFOC-20221114660

PATIENT
  Age: 49 Year

DRUGS (2)
  1. TOPIRAMATE [Suspect]
     Active Substance: TOPIRAMATE
     Indication: Product used for unknown indication
     Route: 048
     Dates: start: 2013
  2. TOPIRAMATE [Suspect]
     Active Substance: TOPIRAMATE
     Dosage: INTO 2 DIVIDED DOSES
     Route: 048

REACTIONS (2)
  - Decreased appetite [Unknown]
  - Extrapyramidal disorder [Unknown]
